FAERS Safety Report 14963730 (Version 2)
Quarter: 2018Q4

REPORT INFORMATION
  Report Type: Report from Study
  Country: DE (occurrence: DE)
  Receive Date: 20180601
  Receipt Date: 20181017
  Transmission Date: 20190204
  Serious: Yes (Other)
  Sender: FDA-Public Use
  Company Number: DE-PFIZER INC-2018219698

PATIENT
  Age: 73 Year
  Sex: Female
  Weight: 76 kg

DRUGS (20)
  1. PACLITAXEL. [Suspect]
     Active Substance: PACLITAXEL
     Dosage: 67 MG/M2, UNK
     Dates: start: 20100209
  2. PACLITAXEL. [Suspect]
     Active Substance: PACLITAXEL
     Dosage: 67 MG/M2, UNK
     Dates: start: 20100112
  3. CAPECITABINE. [Suspect]
     Active Substance: CAPECITABINE
     Dosage: 2000 MG, UNK
     Dates: start: 20100601
  4. BEVACIZUMAB. [Suspect]
     Active Substance: BEVACIZUMAB
     Dosage: 760 MG, UNK
     Dates: start: 20100223, end: 20100223
  5. METOPROLOL. [Concomitant]
     Active Substance: METOPROLOL
     Dosage: UNK UNK, 1X/DAY
     Dates: start: 20100223
  6. PACLITAXEL. [Suspect]
     Active Substance: PACLITAXEL
     Dosage: 67 MG/M2, UNK
     Dates: start: 20100126
  7. PACLITAXEL. [Suspect]
     Active Substance: PACLITAXEL
     Dosage: 67 MG/M2, UNK
     Dates: start: 20100223
  8. CAPECITABINE. [Suspect]
     Active Substance: CAPECITABINE
     Indication: BREAST CANCER
     Dosage: 2000 MG, UNK
     Dates: start: 20100518, end: 20100601
  9. BEVACIZUMAB. [Suspect]
     Active Substance: BEVACIZUMAB
     Indication: BREAST CANCER
     Dosage: 760 MG, UNK
     Dates: start: 20091015
  10. PACLITAXEL. [Suspect]
     Active Substance: PACLITAXEL
     Indication: BREAST CANCER
     Dosage: 90 MG/M2, UNK
     Dates: start: 20091015
  11. PACLITAXEL. [Suspect]
     Active Substance: PACLITAXEL
     Dosage: 67 MG/M2, UNK
     Dates: start: 20100309
  12. BEVACIZUMAB. [Suspect]
     Active Substance: BEVACIZUMAB
     Dosage: 760 MG, UNK
     Dates: start: 20091210, end: 20091210
  13. 5-FU [FLUOROURACIL] [Concomitant]
     Active Substance: FLUOROURACIL
     Indication: BREAST CANCER
     Dosage: 2000 MG, UNK
     Route: 048
     Dates: start: 20100420
  14. PACLITAXEL. [Suspect]
     Active Substance: PACLITAXEL
     Dosage: 90 MG/M2, UNK
     Dates: start: 20091029
  15. PACLITAXEL. [Suspect]
     Active Substance: PACLITAXEL
     Dosage: 67 MG/M2, UNK
     Dates: start: 20091229
  16. PACLITAXEL. [Suspect]
     Active Substance: PACLITAXEL
     Dosage: 90 MG/M2, UNK
     Dates: start: 20091112
  17. RAMIPRIL. [Concomitant]
     Active Substance: RAMIPRIL
     Dosage: UNK UNK, 1X/DAY
     Dates: start: 20100209
  18. PACLITAXEL. [Suspect]
     Active Substance: PACLITAXEL
     Dosage: 90 MG/M2, UNK
     Dates: start: 20091210
  19. PACLITAXEL. [Suspect]
     Active Substance: PACLITAXEL
     Dosage: 67 MG/M2, UNK
     Dates: start: 20100323
  20. BEVACIZUMAB. [Suspect]
     Active Substance: BEVACIZUMAB
     Dosage: 760 MG, UNK
     Dates: end: 20100824

REACTIONS (8)
  - General physical health deterioration [Not Recovered/Not Resolved]
  - Hypertension [Unknown]
  - Renal impairment [Unknown]
  - Polyneuropathy [Recovered/Resolved]
  - Malaise [Not Recovered/Not Resolved]
  - Infection [Unknown]
  - Drug intolerance [Unknown]
  - Fatigue [Not Recovered/Not Resolved]

NARRATIVE: CASE EVENT DATE: 20091030
